FAERS Safety Report 8943364 (Version 5)
Quarter: 2014Q2

REPORT INFORMATION
  Report Type: Spontaneous
  Country: US (occurrence: US)
  Receive Date: 20121203
  Receipt Date: 20140506
  Transmission Date: 20141212
  Serious: Yes (Disabling, Other)
  Sender: FDA-Public Use
  Company Number: US-009507513-1211USA010788

PATIENT
  Sex: Male
  Weight: 72.56 kg

DRUGS (8)
  1. PROSCAR [Suspect]
     Indication: ANDROGENETIC ALOPECIA
     Dosage: 5 MG, UNK
     Route: 048
     Dates: start: 2007
  2. PROSCAR [Suspect]
     Dosage: 5 MG, QD
     Route: 048
     Dates: start: 20080710, end: 20080715
  3. PROSCAR [Suspect]
     Dosage: 5 MG, QD
     Route: 048
     Dates: end: 20111006
  4. PROPECIA [Suspect]
     Indication: ANDROGENETIC ALOPECIA
     Dosage: 1 MG, UNK
     Route: 048
     Dates: start: 2007
  5. PROPECIA [Suspect]
     Dosage: 1 MG, UNK
     Route: 048
     Dates: start: 20111024
  6. FINASTERIDE [Suspect]
     Indication: ANDROGENETIC ALOPECIA
     Dosage: 5 MG, UNK
     Route: 048
     Dates: start: 20100201, end: 20110117
  7. MINOXIDIL [Suspect]
     Indication: ALOPECIA
     Dosage: UNK
     Dates: start: 2007
  8. T3 [Suspect]
     Indication: REVERSE TRI-IODOTHYRONINE INCREASED
     Dosage: UNK
     Dates: end: 20090904

REACTIONS (46)
  - Anxiety [Not Recovered/Not Resolved]
  - Cognitive disorder [Not Recovered/Not Resolved]
  - Testicular failure [Unknown]
  - Hypogonadism male [Recovered/Resolved]
  - Prostatomegaly [Unknown]
  - Hormone level abnormal [Unknown]
  - Blood follicle stimulating hormone increased [Unknown]
  - Drug administration error [Unknown]
  - Sexual dysfunction [Not Recovered/Not Resolved]
  - Ejaculation failure [Unknown]
  - Tinea cruris [Unknown]
  - Pain in extremity [Not Recovered/Not Resolved]
  - Intervertebral disc disorder [Unknown]
  - Oedema [Not Recovered/Not Resolved]
  - Metabolic disorder [Unknown]
  - Paraesthesia [Unknown]
  - Device failure [Unknown]
  - Breast tenderness [Recovered/Resolved]
  - Blood mercury abnormal [Unknown]
  - Photodermatosis [Unknown]
  - Rash [Unknown]
  - Benign neoplasm of skin [Unknown]
  - Reverse tri-iodothyronine increased [Unknown]
  - Blood luteinising hormone increased [Unknown]
  - Hepatic enzyme increased [Unknown]
  - Lipoedema [Unknown]
  - Large intestine polyp [Unknown]
  - Eczema [Recovering/Resolving]
  - Haemorrhoids [Unknown]
  - Urticaria [Unknown]
  - Varicose vein [Not Recovered/Not Resolved]
  - Rheumatoid arthritis [Unknown]
  - Depression [Not Recovered/Not Resolved]
  - Hyperlipidaemia [Unknown]
  - Insomnia [Unknown]
  - Libido decreased [Unknown]
  - Weight loss poor [Unknown]
  - Cellulitis [Unknown]
  - Peripheral swelling [Unknown]
  - Lymphoma [Unknown]
  - Fatigue [Unknown]
  - Malaise [Unknown]
  - Blood oestrogen increased [Unknown]
  - Abnormal weight gain [Unknown]
  - Hypothalamo-pituitary disorder [Unknown]
  - Autoimmune thyroiditis [Unknown]
